FAERS Safety Report 9705836 (Version 3)
Quarter: 2015Q3

REPORT INFORMATION
  Report Type: Spontaneous
  Country: US (occurrence: US)
  Receive Date: 20131122
  Receipt Date: 20150803
  Transmission Date: 20151125
  Serious: No
  Sender: FDA-Public Use
  Company Number: US-GILEAD-2008-0017768

PATIENT
  Age: 61 Year
  Sex: Female
  Weight: 62.14 kg

DRUGS (16)
  1. DIGOXIN. [Concomitant]
     Active Substance: DIGOXIN
     Route: 048
  2. COUMADIN [Concomitant]
     Active Substance: WARFARIN SODIUM
     Dosage: AS DIRECTED
     Route: 048
  3. SEROQUEL [Concomitant]
     Active Substance: QUETIAPINE FUMARATE
     Route: 048
  4. GABAPENTIN. [Concomitant]
     Active Substance: GABAPENTIN
     Route: 048
  5. PROZAC [Concomitant]
     Active Substance: FLUOXETINE HYDROCHLORIDE
     Route: 048
  6. TRACLEER [Concomitant]
     Active Substance: BOSENTAN
     Route: 048
  7. VALTREX [Concomitant]
     Active Substance: VALACYCLOVIR HYDROCHLORIDE
     Route: 048
  8. POT CHLOR [Concomitant]
     Route: 048
  9. LETAIRIS [Suspect]
     Active Substance: AMBRISENTAN
     Indication: PULMONARY ARTERIAL HYPERTENSION
     Route: 048
     Dates: start: 20080621
  10. DEMADEX [Concomitant]
     Active Substance: TORSEMIDE
     Route: 048
  11. NEXIUM [Concomitant]
     Active Substance: ESOMEPRAZOLE MAGNESIUM
     Route: 048
  12. NEURONTIN [Concomitant]
     Active Substance: GABAPENTIN
     Route: 048
  13. VIAGRA [Concomitant]
     Active Substance: SILDENAFIL CITRATE
     Route: 048
  14. XANAX [Concomitant]
     Active Substance: ALPRAZOLAM
     Route: 048
  15. VENTAVIS [Concomitant]
     Active Substance: ILOPROST
     Route: 055
  16. LITHIUM CARB [Concomitant]
     Active Substance: LITHIUM CARBONATE
     Route: 048

REACTIONS (1)
  - Fatigue [Unknown]
